FAERS Safety Report 4885950-4 (Version None)
Quarter: 2006Q1

REPORT INFORMATION
  Report Type: 
  Country: None (occurrence: None)
  Receive Date: 20060117
  Receipt Date: 20060103
  Transmission Date: 20060701
  Serious: Yes (Hospitalization)
  Sender: FDA-Public Use
  Company Number: 2005EU002584

PATIENT
  Age: 59 Year
  Sex: Female

DRUGS (10)
  1. FK506 (TACROLIMUS CAPSULES) CAPSULE [Suspect]
     Indication: LIVER TRANSPLANT
     Dosage: 2 MG IV NOS
     Route: 042
     Dates: start: 20050217, end: 20050218
  2. FK506 (TACROLIMUS CAPSULES) CAPSULE [Suspect]
     Indication: LIVER TRANSPLANT
     Dosage: 2 MG IV NOS
     Route: 042
     Dates: start: 20050218, end: 20050624
  3. MYCOPHENOLATE MOFETIL (MYCOPHENOLATE MOFETIL) [Suspect]
     Indication: LIVER TRANSPLANT
     Dosage: 1000MG BID IV NOS
     Route: 042
     Dates: start: 20050217, end: 20050221
  4. MYCOPHENOLATE MOFETIL (MYCOPHENOLATE MOFETIL) [Suspect]
     Indication: LIVER TRANSPLANT
     Dosage: 1000MG BID IV NOS
     Route: 042
     Dates: start: 20050222, end: 20050623
  5. PREDNISONE [Suspect]
     Indication: LIVER TRANSPLANT
     Dosage: 75 MG UID/QD
     Dates: start: 20050218, end: 20050220
  6. PREDNISOLONE [Suspect]
     Indication: LIVER TRANSPLANT
     Dosage: 7.5 MG UID/QD
     Dates: start: 20050220
  7. CORTICOSTEROIDS [Suspect]
     Indication: LIVER TRANSPLANT
     Dosage: 500 MG UID/QD
     Dates: start: 20050716, end: 20050720
  8. GANCICLOVIR [Concomitant]
  9. INSULIN [Concomitant]
  10. FUROSEMIDE [Concomitant]

REACTIONS (2)
  - COORDINATION ABNORMAL [None]
  - DYSARTHRIA [None]
